FAERS Safety Report 25348064 (Version 1)
Quarter: 2025Q2

REPORT INFORMATION
  Report Type: Spontaneous
  Country: JP (occurrence: JP)
  Receive Date: 20250522
  Receipt Date: 20250522
  Transmission Date: 20250716
  Serious: Yes (Hospitalization)
  Sender: FERRING
  Company Number: JP-ferring-EVA202500697FERRINGPH

PATIENT

DRUGS (1)
  1. DESMOPRESSIN [Suspect]
     Active Substance: DESMOPRESSIN
     Indication: Diabetes insipidus
     Route: 065

REACTIONS (3)
  - Injury [Unknown]
  - Treatment noncompliance [Unknown]
  - Therapeutic product effect decreased [Unknown]
